FAERS Safety Report 6109950-1 (Version None)
Quarter: 2009Q1

REPORT INFORMATION
  Report Type: 
  Country: None (occurrence: None)
  Receive Date: 20090310
  Receipt Date: 20080925
  Transmission Date: 20090719
  Serious: No
  Sender: FDA-Public Use
  Company Number: A0749172A

PATIENT
  Age: 55 Year
  Sex: Male

DRUGS (1)
  1. NICORETTE WHITE ICE OTC 2MG [Suspect]
     Dates: start: 20080920, end: 20080923

REACTIONS (1)
  - THROAT IRRITATION [None]
